FAERS Safety Report 8111719 (Version 5)
Quarter: 2014Q2

REPORT INFORMATION
  Report Type: Spontaneous
  Country: JP (occurrence: JP)
  Receive Date: 20110829
  Receipt Date: 20140409
  Transmission Date: 20141212
  Serious: Yes (Other)
  Sender: FDA-Public Use
  Company Number: JP-JNJFOC-20110700621

PATIENT
  Age: 38 Year
  Sex: Female

DRUGS (7)
  1. REMICADE [Suspect]
     Indication: CROHN^S DISEASE
     Dosage: 29 TOTAL INFUSIONS
     Route: 042
     Dates: start: 20110723
  2. REMICADE [Suspect]
     Indication: CROHN^S DISEASE
     Dosage: 27TH DOSE OF INFLIXIMAB, RECOMBINANT
     Route: 042
     Dates: start: 20110205
  3. REMICADE [Suspect]
     Indication: CROHN^S DISEASE
     Dosage: 28TH DOSE
     Route: 042
     Dates: start: 20110528
  4. REMICADE [Suspect]
     Indication: CROHN^S DISEASE
     Dosage: 1ST DOSE
     Route: 042
     Dates: start: 20061005
  5. PENTASA [Concomitant]
     Indication: CROHN^S DISEASE
     Route: 048
     Dates: start: 200610
  6. CALONAL [Concomitant]
     Indication: PROPHYLAXIS
     Dosage: 600DF
     Route: 048
     Dates: start: 200610
  7. TAVEGYL [Concomitant]
     Indication: PROPHYLAXIS
     Dosage: 2 MG
     Route: 048
     Dates: start: 200610

REACTIONS (1)
  - Platelet aggregation [Not Recovered/Not Resolved]
